FAERS Safety Report 10041988 (Version 2)
Quarter: 2014Q2

REPORT INFORMATION
  Report Type: Report from Study
  Country: CA (occurrence: CA)
  Receive Date: 20140327
  Receipt Date: 20140414
  Transmission Date: 20141212
  Serious: Yes (Hospitalization)
  Sender: FDA-Public Use
  Company Number: CA-ABBVIE-14P-028-1215303-00

PATIENT
  Age: 68 Year
  Sex: Male
  Weight: 76.73 kg

DRUGS (5)
  1. HUMIRA [Suspect]
     Indication: CROHN^S DISEASE
     Route: 058
     Dates: start: 20131206, end: 20140314
  2. HUMIRA [Suspect]
     Route: 058
     Dates: start: 201403
  3. INSULIN [Concomitant]
     Indication: DIABETES MELLITUS
     Dates: start: 1990
  4. ENTOCORT [Concomitant]
     Indication: CROHN^S DISEASE
     Route: 048
     Dates: start: 20130301, end: 20140101
  5. METHOTREXATE [Concomitant]
     Indication: PRODUCT USED FOR UNKNOWN INDICATION
     Route: 048
     Dates: start: 20131008, end: 20140205

REACTIONS (11)
  - Loss of consciousness [Recovered/Resolved]
  - Pyrexia [Recovering/Resolving]
  - Chills [Not Recovered/Not Resolved]
  - Hyperhidrosis [Not Recovered/Not Resolved]
  - Crohn^s disease [Recovering/Resolving]
  - Diarrhoea [Unknown]
  - Dizziness [Unknown]
  - Night sweats [Unknown]
  - Anastomotic ulcer [Unknown]
  - Haematochezia [Not Recovered/Not Resolved]
  - Anaemia [Not Recovered/Not Resolved]
